FAERS Safety Report 7429597-4 (Version None)
Quarter: 2011Q2

REPORT INFORMATION
  Report Type: 
  Country: None (occurrence: None)
  Receive Date: 20110421
  Receipt Date: 20110414
  Transmission Date: 20111010
  Serious: Yes (Other)
  Sender: FDA-Public Use
  Company Number: B0705356A

PATIENT
  Sex: Female

DRUGS (8)
  1. TOFRANIL [Suspect]
     Indication: DEPRESSION
     Dosage: 30MG PER DAY
     Route: 048
     Dates: start: 20101221
  2. PAXIL [Suspect]
     Indication: DEPRESSION
     Dosage: 10MG PER DAY
     Route: 048
     Dates: start: 20110303, end: 20110305
  3. PAXIL [Suspect]
     Dosage: 2.5MG PER DAY
     Route: 048
     Dates: start: 20110313, end: 20110317
  4. ETIZOLAM [Concomitant]
     Indication: INSOMNIA
     Dosage: .5MG PER DAY
     Route: 048
     Dates: start: 20101117
  5. PAXIL [Suspect]
     Dosage: 5MG PER DAY
     Route: 048
     Dates: start: 20110318, end: 20110322
  6. SULPIRIDE [Suspect]
     Indication: DEPRESSION
     Dosage: 150MG PER DAY
     Route: 048
     Dates: start: 20101115
  7. TRIAZOLAM [Concomitant]
     Indication: INSOMNIA
     Dosage: .25MG PER DAY
     Route: 048
     Dates: start: 20101221
  8. CHINESE MEDICINE [Concomitant]
     Indication: INSOMNIA
     Dosage: 2.5MG PER DAY
     Route: 048
     Dates: start: 20101101

REACTIONS (7)
  - BLOOD PRESSURE INCREASED [None]
  - HYPERHIDROSIS [None]
  - TREMOR [None]
  - PYREXIA [None]
  - AGITATION [None]
  - SEROTONIN SYNDROME [None]
  - DIARRHOEA [None]
